FAERS Safety Report 7069361-1 (Version None)
Quarter: 2010Q4

REPORT INFORMATION
  Report Type: 
  Country: None (occurrence: None)
  Receive Date: 20101028
  Receipt Date: 20101021
  Transmission Date: 20110411
  Serious: Yes (Other)
  Sender: FDA-Public Use
  Company Number: JP-GENENTECH-308584

PATIENT
  Age: 30 Year
  Sex: Female

DRUGS (5)
  1. RITUXIMAB [Suspect]
     Indication: LUPUS NEPHRITIS
     Dosage: 530 MG, UNK
     Dates: start: 20100101
  2. PREDNISOLONE [Concomitant]
     Indication: LUPUS NEPHRITIS
     Dosage: UNK
  3. MYCOPHENOLATE MOFETIL [Concomitant]
     Indication: LUPUS NEPHRITIS
     Dosage: 1.5 G, QD
  4. TACROLIMUS [Concomitant]
     Indication: LUPUS NEPHRITIS
     Dosage: 3 MG, QD
  5. CYCLOPHOSPHAMIDE [Concomitant]
     Indication: LUPUS NEPHRITIS
     Dosage: 500 MG, Q2W

REACTIONS (3)
  - COMPLEMENT FACTOR DECREASED [None]
  - PANCYTOPENIA [None]
  - PYREXIA [None]
